FAERS Safety Report 10253305 (Version 1)
Quarter: 2014Q2

REPORT INFORMATION
  Report Type: Spontaneous
  Country: US (occurrence: None)
  Receive Date: 20140619
  Receipt Date: 20140619
  Transmission Date: 20141212
  Serious: Yes (Other)
  Sender: FDA-Public Use
  Company Number: None

PATIENT
  Sex: Female

DRUGS (10)
  1. FOSAMAX [Suspect]
     Indication: OSTEOPOROSIS
     Dates: start: 199612, end: 20110916
  2. GLUCOSANNE/CHONDROITIN [Concomitant]
  3. CALCIUM [Concomitant]
  4. RED YEAR RICE [Concomitant]
  5. CHOLESTERPURE -NIACITOL [Concomitant]
  6. ZYFLAMEND [Concomitant]
  7. FISH OIL [Concomitant]
  8. MULTI-VITAMIN [Concomitant]
  9. VITAMIN D3 [Concomitant]
  10. CO Q10 [Concomitant]

REACTIONS (3)
  - Fracture [None]
  - Pain [None]
  - Fall [None]
